FAERS Safety Report 25158693 (Version 1)
Quarter: 2025Q2

REPORT INFORMATION
  Report Type: Spontaneous
  Country: US (occurrence: US)
  Receive Date: 20250404
  Receipt Date: 20250404
  Transmission Date: 20250717
  Serious: Yes (Hospitalization, Other)
  Sender: DR REDDYS
  Company Number: None

PATIENT
  Age: 29 Year
  Sex: Female

DRUGS (2)
  1. METOPROLOL [Suspect]
     Active Substance: METOPROLOL
     Indication: Heart rate increased
  2. METOPROLOL [Suspect]
     Active Substance: METOPROLOL
     Indication: Hypotension

REACTIONS (3)
  - Dyspnoea [Unknown]
  - Palpitations [Unknown]
  - Foetal growth restriction [Unknown]
